FAERS Safety Report 8313896-8 (Version None)
Quarter: 2012Q2

REPORT INFORMATION
  Report Type: 
  Country: None (occurrence: None)
  Receive Date: 20120426
  Receipt Date: 20120426
  Transmission Date: 20120825
  Serious: Yes (Life-Threatening, Hospitalization)
  Sender: FDA-Public Use
  Company Number: None

PATIENT
  Age: 54 Year
  Sex: Female
  Weight: 54 kg

DRUGS (2)
  1. LEVOFLOXACIN [Suspect]
     Indication: SINUSITIS
     Dosage: UNKNOWN
     Route: 048
  2. LEVOFLOXACIN [Suspect]
     Indication: SINUSITIS
     Dosage: UNKNOWN
     Route: 048

REACTIONS (9)
  - RASH [None]
  - RENAL FAILURE [None]
  - DIARRHOEA [None]
  - PRURITUS [None]
  - BURNING SENSATION [None]
  - HYPOTENSION [None]
  - VOMITING [None]
  - ASTHENIA [None]
  - TOXIC SHOCK SYNDROME [None]
